FAERS Safety Report 21379916 (Version 2)
Quarter: 2022Q4

REPORT INFORMATION
  Report Type: Spontaneous
  Country: US (occurrence: US)
  Receive Date: 20220927
  Receipt Date: 20221007
  Transmission Date: 20230113
  Serious: Yes (Other)
  Sender: FDA-Public Use
  Company Number: US-MLMSERVICE-20220913-3786176-1

PATIENT
  Age: 32 Year
  Sex: Male

DRUGS (2)
  1. OXYCODONE AND ACETAMINOPHEN [Suspect]
     Active Substance: ACETAMINOPHEN\OXYCODONE HYDROCHLORIDE
     Indication: Musculoskeletal injury
     Dosage: UNK
     Route: 065
  2. FENTANYL [Suspect]
     Active Substance: FENTANYL
     Indication: Musculoskeletal injury
     Dosage: 1 GRAM, QD, SMOKING ABOUT 1G DAILY FOR THE LAST 3 MONTHS

REACTIONS (2)
  - Drug use disorder [Recovered/Resolved]
  - Drug dependence [Recovered/Resolved]
